FAERS Safety Report 24587133 (Version 1)
Quarter: 2024Q4

REPORT INFORMATION
  Report Type: Spontaneous
  Country: US (occurrence: US)
  Receive Date: 20241107
  Receipt Date: 20241107
  Transmission Date: 20250114
  Serious: No
  Sender: SANDOZ
  Company Number: US-SANDOZ-SDZ2024US092950

PATIENT
  Age: 89 Year
  Sex: Female

DRUGS (1)
  1. ADALIMUMAB [Suspect]
     Active Substance: ADALIMUMAB
     Indication: Rheumatoid arthritis
     Dosage: 40 MG N/A DOSE EVERY N/A N/A
     Route: 058
     Dates: start: 20240816, end: 20241104

REACTIONS (2)
  - Hyperhidrosis [Not Recovered/Not Resolved]
  - Chills [Not Recovered/Not Resolved]

NARRATIVE: CASE EVENT DATE: 20240816
